FAERS Safety Report 15336483 (Version 1)
Quarter: 2018Q3

REPORT INFORMATION
  Report Type: Spontaneous
  Country: DE (occurrence: DE)
  Receive Date: 20180830
  Receipt Date: 20180830
  Transmission Date: 20181010
  Serious: Yes (Other)
  Sender: FDA-Public Use
  Company Number: PHHY2018DE085812

PATIENT
  Sex: Male

DRUGS (1)
  1. VALSARTAN + HCT [Suspect]
     Active Substance: HYDROCHLOROTHIAZIDE\VALSARTAN
     Indication: BLOOD PRESSURE ABNORMAL
     Dosage: UNK (ANWENDUNG SEIT KNAPP 2 JAHREN)
     Route: 065

REACTIONS (2)
  - Oesophageal carcinoma [Unknown]
  - Product impurity [Unknown]
